FAERS Safety Report 9201556 (Version 2)
Quarter: 2013Q4

REPORT INFORMATION
  Report Type: Spontaneous
  Country: US (occurrence: US)
  Receive Date: 20130401
  Receipt Date: 20131011
  Transmission Date: 20140711
  Serious: Yes (Hospitalization)
  Sender: FDA-Public Use
  Company Number: US-BAYER-2013-037677

PATIENT
  Age: 48 Year
  Sex: Female

DRUGS (2)
  1. YASMIN [Suspect]
  2. YAZ [Suspect]

REACTIONS (7)
  - Deep vein thrombosis [None]
  - Thrombophlebitis superficial [None]
  - Oedema [None]
  - Pain [None]
  - Varicose vein [None]
  - Scar [None]
  - Bleeding varicose vein [None]
